FAERS Safety Report 7121481-9 (Version None)
Quarter: 2010Q4

REPORT INFORMATION
  Report Type: 
  Country: None (occurrence: None)
  Receive Date: 20101119
  Receipt Date: 20101119
  Transmission Date: 20110411
  Serious: Yes (Death, Hospitalization)
  Sender: FDA-Public Use
  Company Number: None

PATIENT
  Age: 74 Year
  Sex: Female

DRUGS (13)
  1. ESTRACE [Suspect]
     Indication: BREAST CANCER
     Dosage: (5) X 2MG = 10MG TID PO
     Route: 048
     Dates: start: 20100909, end: 20100917
  2. ESTRACE [Suspect]
  3. ZINC [Concomitant]
  4. MEGACE [Concomitant]
  5. LOVENOX [Concomitant]
  6. TYLENOL (CAPLET) [Concomitant]
  7. PHENERGAN [Concomitant]
  8. ZOFRAN [Concomitant]
  9. DILAUDID [Concomitant]
  10. CALCIUM CARBONATE [Concomitant]
  11. IMODIUM [Concomitant]
  12. STOOL SOFTENER [Concomitant]
  13. GAS-X [Concomitant]

REACTIONS (2)
  - HEPATIC FAILURE [None]
  - RENAL FAILURE [None]
